FAERS Safety Report 23971887 (Version 1)
Quarter: 2024Q2

REPORT INFORMATION
  Report Type: Spontaneous
  Country: GB (occurrence: GB)
  Receive Date: 20240613
  Receipt Date: 20240613
  Transmission Date: 20240716
  Serious: Yes (Other)
  Sender: FDA-Public Use
  Company Number: None

PATIENT
  Age: 38 Year
  Sex: Female

DRUGS (6)
  1. LEVETIRACETAM [Interacting]
     Active Substance: LEVETIRACETAM
     Indication: Temporal lobe epilepsy
     Dosage: 2000 MILLIGRAM PER DAY
  2. VALPROATE SODIUM [Interacting]
     Active Substance: VALPROATE SODIUM
     Indication: Temporal lobe epilepsy
     Dosage: 1500 MILLIGRAM PER DAY, (RETARD)
  3. ZONISAMIDE [Interacting]
     Active Substance: ZONISAMIDE
     Indication: Temporal lobe epilepsy
     Dosage: 150 MILLIGRAM PER DAY
  4. CARBAMAZEPINE [Interacting]
     Active Substance: CARBAMAZEPINE
     Indication: Temporal lobe epilepsy
     Dosage: 1000 MILLIGRAM PER DAY, (RETARD)
  5. TARIQUIDAR [Interacting]
     Active Substance: TARIQUIDAR
     Indication: Temporal lobe epilepsy
     Dosage: 2 MILLIGRAM/KILOGRAM
     Route: 042
  6. CLOBAZAM [Suspect]
     Active Substance: CLOBAZAM
     Indication: Seizure cluster
     Dosage: 10 MILLIGRAM, AS NEEDED (PRN)

REACTIONS (5)
  - Ataxia [Recovered/Resolved]
  - Drug interaction [Recovered/Resolved]
  - Vision blurred [Recovered/Resolved]
  - Nausea [Recovered/Resolved]
  - Multiple-drug resistance [Unknown]
